FAERS Safety Report 19976189 (Version 1)
Quarter: 2021Q4

REPORT INFORMATION
  Report Type: Spontaneous
  Country: US (occurrence: US)
  Receive Date: 20211020
  Receipt Date: 20211020
  Transmission Date: 20220303
  Serious: Yes (Other)
  Sender: FDA-Public Use
  Company Number: US-TAKEDA-2021TUS063852

PATIENT
  Sex: Female

DRUGS (5)
  1. VONVENDI [Suspect]
     Active Substance: VON WILLEBRAND FACTOR (RECOMBINANT)
     Indication: Von Willebrand^s disease
     Dosage: 3000 INTERNATIONAL UNIT
     Route: 065
  2. VONVENDI [Suspect]
     Active Substance: VON WILLEBRAND FACTOR (RECOMBINANT)
     Dosage: 60 MILLIGRAM/KILOGRAM
     Route: 042
     Dates: start: 2019
  3. VONVENDI [Suspect]
     Active Substance: VON WILLEBRAND FACTOR (RECOMBINANT)
     Dosage: UNK
  4. HEMLIBRA [Concomitant]
     Active Substance: EMICIZUMAB-KXWH
     Indication: Intermenstrual bleeding
     Dosage: UNK
     Route: 065
  5. Covid-19 vaccine [Concomitant]
     Dosage: UNK
     Route: 065

REACTIONS (2)
  - Haemarthrosis [Unknown]
  - Weight decreased [Unknown]
